FAERS Safety Report 6899746-5 (Version None)
Quarter: 2010Q3

REPORT INFORMATION
  Report Type: 
  Country: None (occurrence: None)
  Receive Date: 20100708
  Receipt Date: 20090722
  Transmission Date: 20110219
  Serious: Yes (Other)
  Sender: FDA-Public Use
  Company Number: 2009243990

PATIENT
  Age: 30 Year
  Sex: Female
  Weight: 54.4 kg

DRUGS (2)
  1. CHANTIX [Suspect]
     Indication: SMOKING CESSATION THERAPY
     Dosage: 0.5 MG, 2X/DAY, ORAL
     Route: 048
     Dates: start: 20090709
  2. ADDERALL 10 [Concomitant]

REACTIONS (2)
  - INSOMNIA [None]
  - PARANOIA [None]
